FAERS Safety Report 7445671-0 (Version None)
Quarter: 2011Q2

REPORT INFORMATION
  Report Type: 
  Country: None (occurrence: None)
  Receive Date: 20110429
  Receipt Date: 20100326
  Transmission Date: 20111010
  Serious: No
  Sender: FDA-Public Use
  Company Number: US-ASTRAZENECA-2010SE13696

PATIENT
  Sex: Female

DRUGS (2)
  1. NEXIUM [Suspect]
     Route: 048
     Dates: start: 20090301
  2. CRESTOR [Suspect]
     Route: 048
     Dates: start: 20080101

REACTIONS (2)
  - RENAL IMPAIRMENT [None]
  - PROTEIN URINE PRESENT [None]
